FAERS Safety Report 9905222 (Version 1)
Quarter: 2013Q2

REPORT INFORMATION
  Report Type: Spontaneous
  Country: US (occurrence: None)
  Receive Date: 20130305
  Receipt Date: 20130305
  Transmission Date: 20140414
  Serious: Yes (Other)
  Sender: FDA-Public Use
  Company Number: 163-21880-12030715

PATIENT
  Age: 56 Year
  Sex: Male
  Weight: 103.87 kg

DRUGS (17)
  1. REVLIMID [Suspect]
     Indication: PLASMA CELL MYELOMA
     Dosage: 10 MG, DAILY FOR 21/28 DAYS, PO
     Route: 048
     Dates: start: 20090217, end: 201202
  2. CLOMIPRAMINE (CLOMIPRAMINE) (TABLETS) [Concomitant]
  3. TOPROL (EMTOPROLOL SUCCINATE) (TABLETS) [Concomitant]
  4. VITAMIN B12 (CYANOCOBALAMIN) (TABLETS) [Concomitant]
  5. ASPIRIN (ACETYSALICYLIC ACID) (TABLETS) [Concomitant]
  6. YOHIMBINE BARK (YOHIMBINE) (UNKNOWN) [Concomitant]
  7. SUNFLOWER OIL (OTHER THERAPEUTIC PRODUCTS) (UNKNOWN) [Concomitant]
  8. TEGRETOL (CARBAMAZEPINE) (TABLETS) [Concomitant]
  9. FISH OIL (FISH OIL) (CAPSULES) [Concomitant]
  10. DEXAMETHASONE (DEXAMETHASONE) (UNKNOWN) [Concomitant]
  11. METOPROLOL SUCCINATE (METOPROLOL SUCCINATE) (50 MILLIGRAM, TABLETS)? [Concomitant]
  12. GARLIC (GARLIC) (CAPSULES) [Concomitant]
  13. GLUCOSAMINE (GLUCOSAMINE) (TABLETS) [Concomitant]
  14. CARBAMAZEPINE (CARBAMAZEPINE) (TABLETS)? [Concomitant]
  15. AZITHROMYCIN (AZITHROMYCIN) (250 MILLIGRM, TABLETS) [Concomitant]
  16. TESTIM (TESTOSTERONE) (GEL) [Concomitant]
  17. ZOMETA (ZOLEDRONIC ACID) (UNKNOWN) [Concomitant]

REACTIONS (1)
  - Plasma cell myeloma [None]
